FAERS Safety Report 8144246-8 (Version None)
Quarter: 2012Q1

REPORT INFORMATION
  Report Type: 
  Country: None (occurrence: None)
  Receive Date: 20120217
  Receipt Date: 20120213
  Transmission Date: 20120608
  Serious: No
  Sender: FDA-Public Use
  Company Number: US-PFIZER INC-2012038738

PATIENT
  Sex: Female

DRUGS (2)
  1. XALATAN [Suspect]
     Indication: INTRAOCULAR PRESSURE TEST
  2. LATANOPROST [Suspect]
     Indication: INTRAOCULAR PRESSURE TEST
     Dosage: UNK

REACTIONS (2)
  - PAIN [None]
  - OCULAR HYPERAEMIA [None]
